FAERS Safety Report 5726091-3 (Version None)
Quarter: 2008Q2

REPORT INFORMATION
  Report Type: 
  Country: None (occurrence: None)
  Receive Date: 20080501
  Receipt Date: 20080501
  Transmission Date: 20081010
  Serious: Yes (Other)
  Sender: FDA-Public Use
  Company Number: None

PATIENT
  Age: 64 Year
  Sex: Male
  Weight: 80.7403 kg

DRUGS (2)
  1. SIMVASTATIN [Suspect]
     Indication: BLOOD CHOLESTEROL INCREASED
     Dosage: 20MG ONE DAILY PO
     Route: 048
     Dates: start: 20070901, end: 20080304
  2. SIMVASTATIN [Suspect]
     Indication: BLOOD CHOLESTEROL INCREASED
     Dosage: 20MG AND 10MG ONE DAILY PO
     Route: 048
     Dates: start: 20080305, end: 20080427

REACTIONS (2)
  - ABDOMINAL PAIN UPPER [None]
  - PHARMACEUTICAL PRODUCT COMPLAINT [None]
